FAERS Safety Report 5855050-5 (Version None)
Quarter: 2008Q3

REPORT INFORMATION
  Report Type: 
  Country: None (occurrence: None)
  Receive Date: 20080822
  Receipt Date: 20080619
  Transmission Date: 20090109
  Serious: No
  Sender: FDA-Public Use
  Company Number: US-ABBOTT-08P-163-0457421-00

PATIENT
  Sex: Female
  Weight: 71.278 kg

DRUGS (2)
  1. SYNTHROID [Suspect]
     Indication: HYPOTHYROIDISM
     Route: 048
     Dates: start: 19930101, end: 20080101
  2. SYNTHROID [Suspect]
     Dates: start: 20080101

REACTIONS (4)
  - DYSPNOEA [None]
  - NAIL DISORDER [None]
  - SKIN DISCOLOURATION [None]
  - VISUAL IMPAIRMENT [None]
